FAERS Safety Report 22221524 (Version 1)
Quarter: 2023Q2

REPORT INFORMATION
  Report Type: Spontaneous
  Country: DE (occurrence: DE)
  Receive Date: 20230418
  Receipt Date: 20230418
  Transmission Date: 20230721
  Serious: Yes (Other)
  Sender: FDA-Public Use
  Company Number: DE-STADA-273590

PATIENT
  Age: 80 Year

DRUGS (2)
  1. LENALIDOMIDE [Suspect]
     Active Substance: LENALIDOMIDE
     Indication: Diffuse large B-cell lymphoma
     Dosage: UNK
     Route: 048
     Dates: start: 202111
  2. TAFASITAMAB [Suspect]
     Active Substance: TAFASITAMAB
     Indication: Diffuse large B-cell lymphoma
     Dosage: 2 CYCLES
     Route: 065
     Dates: start: 202111, end: 202112

REACTIONS (4)
  - Diffuse large B-cell lymphoma [Unknown]
  - Thrombocytopenia [Unknown]
  - Neutropenia [Unknown]
  - Disease progression [Unknown]
